FAERS Safety Report 9360921 (Version 2)
Quarter: 2013Q3

REPORT INFORMATION
  Report Type: Spontaneous
  Country: JP (occurrence: JP)
  Receive Date: 20130621
  Receipt Date: 20130904
  Transmission Date: 20140515
  Serious: Yes (Other)
  Sender: FDA-Public Use
  Company Number: PHHY2013JP062230

PATIENT
  Age: 57 Year
  Sex: Male

DRUGS (3)
  1. CO-DIOVAN [Suspect]
     Indication: HYPERTENSION
     Dosage: 1 DF, DAILY
     Route: 048
     Dates: start: 20130427
  2. CO-DIOVAN [Suspect]
     Dosage: UNK UKN, UNK
  3. CRESTOR [Suspect]
     Indication: HYPERCHOLESTEROLAEMIA
     Dosage: 2.5 MG, DAILY
     Route: 048
     Dates: start: 20100308

REACTIONS (4)
  - Rhabdomyolysis [Recovering/Resolving]
  - Myalgia [Recovered/Resolved]
  - Muscle spasms [Recovered/Resolved]
  - Fatigue [Recovered/Resolved]
